FAERS Safety Report 11916336 (Version 1)
Quarter: 2016Q1

REPORT INFORMATION
  Report Type: Spontaneous
  Country: GB (occurrence: GB)
  Receive Date: 20160114
  Receipt Date: 20160114
  Transmission Date: 20160526
  Serious: Yes (Death)
  Sender: FDA-Public Use
  Company Number: GB-PFIZER INC-2016004791

PATIENT
  Age: 71 Year
  Sex: Male

DRUGS (1)
  1. RIFABUTIN. [Suspect]
     Active Substance: RIFABUTIN
     Indication: RENAL TRANSPLANT
     Dosage: 300 MG ONCE DAILY

REACTIONS (1)
  - Death [Fatal]
